FAERS Safety Report 7389188-0 (Version None)
Quarter: 2011Q1

REPORT INFORMATION
  Report Type: 
  Country: None (occurrence: None)
  Receive Date: 20110329
  Receipt Date: 20110329
  Transmission Date: 20110831
  Serious: No
  Sender: FDA-Public Use
  Company Number: None

PATIENT
  Sex: Female
  Weight: 47.6277 kg

DRUGS (1)
  1. LOVAZA [Suspect]
     Indication: BLOOD CHOLESTEROL INCREASED
     Dosage: ONE BID P.O.
     Route: 048
     Dates: start: 20100305, end: 20110309

REACTIONS (7)
  - INFLUENZA [None]
  - NAUSEA [None]
  - DIARRHOEA [None]
  - GASTRITIS [None]
  - INSOMNIA [None]
  - FLATULENCE [None]
  - DYSGEUSIA [None]
